FAERS Safety Report 12722638 (Version 1)
Quarter: 2016Q3

REPORT INFORMATION
  Report Type: Spontaneous
  Country: BE (occurrence: BE)
  Receive Date: 20160907
  Receipt Date: 20160907
  Transmission Date: 20161109
  Serious: Yes (Hospitalization)
  Sender: FDA-Public Use
  Company Number: BE-ALLERGAN-1668013US

PATIENT
  Age: 35 Year
  Sex: Female

DRUGS (1)
  1. ULIPRISTAL ACETATE UNK [Suspect]
     Active Substance: ULIPRISTAL ACETATE
     Indication: UTERINE LEIOMYOMA
     Dosage: 5 MG, QD
     Route: 065

REACTIONS (1)
  - Urinary retention [Unknown]
